FAERS Safety Report 5412910-7 (Version None)
Quarter: 2007Q3

REPORT INFORMATION
  Report Type: 
  Country: None (occurrence: None)
  Receive Date: 20070813
  Receipt Date: 20070802
  Transmission Date: 20080115
  Serious: Yes (Hospitalization)
  Sender: FDA-Public Use
  Company Number: CH-PFIZER INC-2006085280

PATIENT
  Age: 55 Year
  Sex: Male

DRUGS (2)
  1. DIFLUCAN [Suspect]
     Indication: ORAL CANDIDIASIS
     Route: 048
     Dates: start: 20060515, end: 20060519
  2. TEMOZOLOMIDE [Suspect]
     Indication: GLIOBLASTOMA MULTIFORME
     Route: 048
     Dates: start: 20060406, end: 20060517

REACTIONS (6)
  - BLOOD ALBUMIN DECREASED [None]
  - HYPOPROTEINAEMIA [None]
  - JAUNDICE HEPATOCELLULAR [None]
  - LIVER DISORDER [None]
  - NAUSEA [None]
  - PROTHROMBIN LEVEL DECREASED [None]
